FAERS Safety Report 20085460 (Version 1)
Quarter: 2021Q4

REPORT INFORMATION
  Report Type: Spontaneous
  Country: US (occurrence: US)
  Receive Date: 20211118
  Receipt Date: 20211118
  Transmission Date: 20220303
  Serious: Yes (Hospitalization)
  Sender: FDA-Public Use
  Company Number: US-MYLANLABS-2021M1085240

PATIENT
  Age: 61 Year
  Sex: Male

DRUGS (2)
  1. METHOTREXATE [Suspect]
     Active Substance: METHOTREXATE
     Indication: Diffuse large B-cell lymphoma
     Dosage: 3500 MILLIGRAM/SQ. METER
     Route: 065
  2. LEUCOVORIN [Suspect]
     Active Substance: LEUCOVORIN
     Indication: Toxicity to various agents
     Dosage: UNK
     Route: 065

REACTIONS (4)
  - Toxicity to various agents [Recovered/Resolved]
  - Acute kidney injury [Unknown]
  - Overdose [Recovering/Resolving]
  - Drug ineffective [Unknown]
